FAERS Safety Report 8308565-4 (Version None)
Quarter: 2012Q2

REPORT INFORMATION
  Report Type: 
  Country: None (occurrence: None)
  Receive Date: 20120424
  Receipt Date: 20120411
  Transmission Date: 20120825
  Serious: Yes (Hospitalization)
  Sender: FDA-Public Use
  Company Number: CA-ELI_LILLY_AND_COMPANY-CA201204003554

PATIENT
  Age: 25 Year
  Sex: Female

DRUGS (14)
  1. METHOTRIMEPRAZINE [Concomitant]
  2. ZIPRASIDONE HYDROCHLORIDE [Concomitant]
     Route: 065
  3. ABILIFY [Concomitant]
  4. PERINDOPRIL [Concomitant]
  5. RISPERDAL [Concomitant]
  6. ZYPREXA [Suspect]
     Dosage: 20 MG, QD
  7. ZYPREXA [Suspect]
     Dosage: 30 MG, QD
  8. WELLBUTRIN [Concomitant]
  9. ZYPREXA [Suspect]
     Dosage: 40 MG, QD
  10. PROZAC [Concomitant]
  11. SEROQUEL [Concomitant]
  12. DIVALPROEX SODIUM [Concomitant]
  13. IMOVANE [Concomitant]
  14. ZYPREXA [Suspect]
     Dosage: 50 MG, QD

REACTIONS (12)
  - HAEMORRHAGIC OVARIAN CYST [None]
  - MEAN CELL HAEMOGLOBIN INCREASED [None]
  - STREPTOCOCCAL URINARY TRACT INFECTION [None]
  - WEIGHT INCREASED [None]
  - HEPATIC STEATOSIS [None]
  - ASPARTATE AMINOTRANSFERASE INCREASED [None]
  - ALANINE AMINOTRANSFERASE INCREASED [None]
  - ELECTROCARDIOGRAM QT PROLONGED [None]
  - OVERDOSE [None]
  - HEPATOMEGALY [None]
  - DIABETIC KETOACIDOSIS [None]
  - TYPE 1 DIABETES MELLITUS [None]
